FAERS Safety Report 4851558-X (Version None)
Quarter: 2005Q4

REPORT INFORMATION
  Report Type: 
  Country: None (occurrence: None)
  Receive Date: 20051212
  Receipt Date: 20050919
  Transmission Date: 20060501
  Serious: Yes (Other)
  Sender: FDA-Public Use
  Company Number: US-ROCHE-418405

PATIENT
  Age: 16 Year
  Sex: Male
  Weight: 74.8 kg

DRUGS (3)
  1. ACCUTANE [Suspect]
     Indication: ACNE
     Route: 048
     Dates: start: 20050610, end: 20050715
  2. ACCUTANE [Suspect]
     Route: 048
     Dates: start: 20050715, end: 20050815
  3. ACCUTANE [Suspect]
     Route: 048
     Dates: start: 20050815, end: 20050917

REACTIONS (2)
  - ANXIETY [None]
  - CONFUSIONAL STATE [None]
